FAERS Safety Report 8229344-2 (Version None)
Quarter: 2012Q1

REPORT INFORMATION
  Report Type: 
  Country: None (occurrence: None)
  Receive Date: 20120322
  Receipt Date: 20120321
  Transmission Date: 20120608
  Serious: Yes (Other)
  Sender: FDA-Public Use
  Company Number: CA-BAYER-2012-028077

PATIENT
  Age: 49 Year
  Sex: Female

DRUGS (5)
  1. NORVASC [Concomitant]
  2. PERINDOPRIL ERBUMINE [Concomitant]
  3. ACETAMINOPHEN [Concomitant]
  4. INTERFERON BETA-1B [Suspect]
     Indication: RELAPSING-REMITTING MULTIPLE SCLEROSIS
     Dosage: UNK
     Dates: start: 20070501
  5. BACLOFEN [Concomitant]

REACTIONS (3)
  - INFLUENZA LIKE ILLNESS [None]
  - PYREXIA [None]
  - THYROID MASS [None]
